FAERS Safety Report 7122196-3 (Version None)
Quarter: 2010Q4

REPORT INFORMATION
  Report Type: 
  Country: None (occurrence: None)
  Receive Date: 20101124
  Receipt Date: 20101116
  Transmission Date: 20110411
  Serious: Yes (Other)
  Sender: FDA-Public Use
  Company Number: US-TEVA-253627USA

PATIENT
  Sex: Female

DRUGS (5)
  1. COPAXONE [Suspect]
     Indication: MULTIPLE SCLEROSIS
     Route: 058
     Dates: start: 20010726
  2. LEXAPRO [Concomitant]
  3. LOVAZA [Concomitant]
  4. AMLODIPINE [Concomitant]
  5. TOPICAL STEROID [Concomitant]

REACTIONS (1)
  - T-CELL LYMPHOMA [None]
